FAERS Safety Report 17079821 (Version 1)
Quarter: 2019Q4

REPORT INFORMATION
  Report Type: Spontaneous
  Country: US (occurrence: US)
  Receive Date: 20191127
  Receipt Date: 20191127
  Transmission Date: 20200122
  Serious: No
  Sender: FDA-Public Use
  Company Number: US-AUROBINDO-AUR-APL-2019-026306

PATIENT

DRUGS (5)
  1. CYMBALTA [Concomitant]
     Active Substance: DULOXETINE HYDROCHLORIDE
     Indication: PAIN
     Dosage: UNK
     Route: 065
  2. GABAPENTIN TABLETS [Suspect]
     Active Substance: GABAPENTIN
     Indication: FIBROMYALGIA
     Dosage: 800 MILLIGRAM, ONE IN THE MORNING, ONE AT LUNCH AND TWO AT NIGHT
     Route: 065
     Dates: start: 201012
  3. GABAPENTIN TABLETS [Suspect]
     Active Substance: GABAPENTIN
     Indication: NEUROPATHY PERIPHERAL
     Dosage: 4 DOSAGE FORM, 800 MILLIGRAM, ONE IN THE MORNING, ONE AT LUNCH AND TWO AT NIGHT
     Route: 065
  4. CYMBALTA [Concomitant]
     Active Substance: DULOXETINE HYDROCHLORIDE
     Indication: DEPRESSION
  5. GABAPENTIN TABLETS [Suspect]
     Active Substance: GABAPENTIN
     Dosage: 2 DOSAGE FORM, ONE IN THE MORNING AND ONE AT NIGHT
     Route: 065

REACTIONS (2)
  - Intentional underdose [Unknown]
  - Drug ineffective [Unknown]
